FAERS Safety Report 23873764 (Version 2)
Quarter: 2024Q2

REPORT INFORMATION
  Report Type: Spontaneous
  Country: US (occurrence: US)
  Receive Date: 20240520
  Receipt Date: 20240606
  Transmission Date: 20240716
  Serious: Yes (Hospitalization, Other)
  Sender: FDA-Public Use
  Company Number: US-BRISTOL-MYERS SQUIBB COMPANY-2024-073090

PATIENT
  Age: 61 Year
  Sex: Male

DRUGS (2)
  1. LENALIDOMIDE [Suspect]
     Active Substance: LENALIDOMIDE
     Indication: Plasma cell myeloma
     Dosage: TAKE 1 CAPSULE BY MOUTH DAILY FOR 21 DAYS, THEN REST 7 DAYS
     Route: 048
  2. LENALIDOMIDE [Suspect]
     Active Substance: LENALIDOMIDE
     Route: 048

REACTIONS (4)
  - Intestinal obstruction [Recovered/Resolved]
  - Diabetes mellitus [Unknown]
  - Neoplasm malignant [Unknown]
  - Thrombosis [Unknown]

NARRATIVE: CASE EVENT DATE: 20240301
